FAERS Safety Report 8987008 (Version 4)
Quarter: 2013Q1

REPORT INFORMATION
  Report Type: Spontaneous
  Country: US (occurrence: US)
  Receive Date: 20121227
  Receipt Date: 20130205
  Transmission Date: 20140127
  Serious: Yes (Hospitalization)
  Sender: FDA-Public Use
  Company Number: US-BIOGENIDEC-2012BI061894

PATIENT
  Age: 32 Year
  Sex: Male

DRUGS (3)
  1. TYSABRI [Suspect]
     Indication: MULTIPLE SCLEROSIS
     Route: 042
     Dates: start: 20121102, end: 20121217
  2. FENTANYL PATCH [Concomitant]
     Route: 062
  3. MEDICATION (NOS) [Concomitant]

REACTIONS (7)
  - Anaphylactic reaction [Recovered/Resolved]
  - Convulsion [Unknown]
  - Multiple sclerosis relapse [Unknown]
  - Burnout syndrome [Recovered/Resolved]
  - Fear [Recovered/Resolved]
  - Confusional state [Recovered/Resolved]
  - Vision blurred [Recovered/Resolved]
